FAERS Safety Report 18724688 (Version 1)
Quarter: 2021Q1

REPORT INFORMATION
  Report Type: Spontaneous
  Country: CN (occurrence: CN)
  Receive Date: 20210111
  Receipt Date: 20210111
  Transmission Date: 20210419
  Serious: Yes (Other)
  Sender: FDA-Public Use
  Company Number: CN-PFIZER INC-2021006092

PATIENT
  Age: 31 Year
  Sex: Female
  Weight: 55 kg

DRUGS (2)
  1. SODIUM CHLORIDE. [Concomitant]
     Active Substance: SODIUM CHLORIDE
     Indication: ENCEPHALITIS AUTOIMMUNE
     Dosage: 250 ML, 1X/DAY
     Route: 041
     Dates: start: 20201117, end: 20201120
  2. SOLU?MEDROL [Suspect]
     Active Substance: METHYLPREDNISOLONE SODIUM SUCCINATE
     Indication: ENCEPHALITIS AUTOIMMUNE
     Dosage: 1000 MG, 1X/DAY
     Route: 041
     Dates: start: 20201117, end: 20201120

REACTIONS (4)
  - Hemianopia [Unknown]
  - Off label use [Unknown]
  - Flushing [Unknown]
  - White blood cell count increased [Recovering/Resolving]

NARRATIVE: CASE EVENT DATE: 20201117
